FAERS Safety Report 7899400-7 (Version None)
Quarter: 2011Q4

REPORT INFORMATION
  Report Type: 
  Country: None (occurrence: None)
  Receive Date: 20111107
  Receipt Date: 20110914
  Transmission Date: 20120403
  Serious: No
  Sender: FDA-Public Use
  Company Number: US-AMGEN-USASP2011047257

PATIENT
  Age: 64 Year
  Sex: Female

DRUGS (1)
  1. ENBREL [Suspect]
     Indication: PSORIASIS
     Dosage: 50 MG, 2 TIMES/WK
     Dates: start: 20110811, end: 20110912

REACTIONS (6)
  - FATIGUE [None]
  - DIARRHOEA [None]
  - DYSPEPSIA [None]
  - PAIN [None]
  - RETCHING [None]
  - CHILLS [None]
